FAERS Safety Report 7331797-9 (Version None)
Quarter: 2011Q1

REPORT INFORMATION
  Report Type: 
  Country: None (occurrence: None)
  Receive Date: 20110304
  Receipt Date: 20091104
  Transmission Date: 20110831
  Serious: No
  Sender: FDA-Public Use
  Company Number: US-PFIZER INC-2009258663

PATIENT
  Sex: Male

DRUGS (7)
  1. DILANTIN [Suspect]
     Indication: CONVULSION
     Dosage: 500 MG, 2X/DAY
     Route: 048
     Dates: start: 19700101, end: 20050101
  2. TEGRETOL [Suspect]
     Indication: CONVULSION
     Dosage: UNK
     Dates: end: 20090801
  3. DEPAKOTE [Concomitant]
     Dosage: 500 MG, UNK
     Dates: start: 20060101, end: 20090201
  4. KEPPRA [Suspect]
     Indication: CONVULSION
     Dosage: 500 MG, UNK
     Dates: start: 20090101, end: 20090801
  5. CYMBALTA [Concomitant]
     Dosage: UNK
     Dates: end: 20090801
  6. XANAX [Concomitant]
     Dosage: UNK
  7. VALPROIC ACID [Concomitant]
     Dosage: UNK

REACTIONS (4)
  - HEPATIC ENZYME ABNORMAL [None]
  - GINGIVAL HYPERPLASIA [None]
  - LOOSE TOOTH [None]
  - MASTICATION DISORDER [None]
